FAERS Safety Report 21646900 (Version 2)
Quarter: 2022Q4

REPORT INFORMATION
  Report Type: Spontaneous
  Country: DE (occurrence: DE)
  Receive Date: 20221127
  Receipt Date: 20221214
  Transmission Date: 20230112
  Serious: Yes (Other)
  Sender: FDA-Public Use
  Company Number: None

PATIENT
  Sex: Male
  Weight: 79 kg

DRUGS (2)
  1. FLUVASTATIN [Suspect]
     Active Substance: FLUVASTATIN SODIUM
     Indication: Low density lipoprotein increased
     Dosage: 20 MILLIGRAM DAILY; 0-0-1 ,UNIT DOSE:20 MG , DURATION :3 DAYS ,FREQUENCY TIME :1 DAYS ,FORM OF ADMIN
     Dates: start: 20220930, end: 20221003
  2. COLESEVELAM HYDROCHLORIDE [Suspect]
     Active Substance: COLESEVELAM HYDROCHLORIDE
     Indication: Low density lipoprotein increased
     Dosage: 6 DOSAGE FORMS DAILY; 625MG 2-2-2,UNIT DOSE :6 DOSAGE FORMS,FREQUENCY TIME :1 DAYS, DURATION :9 DAYS
     Dates: start: 20220908, end: 20220917

REACTIONS (1)
  - Faecaloma [Recovered/Resolved]
